FAERS Safety Report 7338213-1 (Version None)
Quarter: 2011Q1

REPORT INFORMATION
  Report Type: 
  Country: None (occurrence: None)
  Receive Date: 20110308
  Receipt Date: 20110301
  Transmission Date: 20110831
  Serious: No
  Sender: FDA-Public Use
  Company Number: US-PFIZER INC-2010149933

PATIENT
  Sex: Female
  Weight: 59 kg

DRUGS (1)
  1. SPIRONOLACTONE AND HYDROCHLOROTHIAZIDE [Suspect]
     Indication: OEDEMA
     Dosage: 25/25 MG, DAILY
     Route: 048
     Dates: start: 20100501, end: 20100501

REACTIONS (1)
  - RASH [None]
